FAERS Safety Report 20644365 (Version 1)
Quarter: 2022Q1

REPORT INFORMATION
  Report Type: Spontaneous
  Country: IN (occurrence: IN)
  Receive Date: 20220328
  Receipt Date: 20220328
  Transmission Date: 20220424
  Serious: Yes (Other)
  Sender: FDA-Public Use
  Company Number: IN-PFIZER INC-202200426922

PATIENT
  Age: 22 Year
  Sex: Female
  Weight: 61 kg

DRUGS (62)
  1. FOLVITE [Suspect]
     Active Substance: FOLIC ACID
     Dosage: UNK UNK, 1X/DAY
     Dates: start: 20210308
  2. MEDROL [Suspect]
     Active Substance: METHYLPREDNISOLONE
     Dosage: UNK
     Dates: start: 20210224
  3. MEDROL [Suspect]
     Active Substance: METHYLPREDNISOLONE
     Dosage: FOR 15 DAYS
     Dates: start: 20210228
  4. MEDROL [Suspect]
     Active Substance: METHYLPREDNISOLONE
     Dosage: 4 MG OD, 2 MG OD NEXT DAY-FOR 10 DAYS
     Dates: start: 20210308
  5. MEDROL [Suspect]
     Active Substance: METHYLPREDNISOLONE
     Dosage: 4 MG, 2X/DAY
     Dates: start: 20210315
  6. MEDROL [Suspect]
     Active Substance: METHYLPREDNISOLONE
     Dosage: 4 MG BD, 2 MG NEXT DAY FOR 10 DAYS
     Dates: start: 20210322
  7. MEDROL [Suspect]
     Active Substance: METHYLPREDNISOLONE
     Dosage: 2 MG, 2X/DAY
     Dates: start: 20210327
  8. MEDROL [Suspect]
     Active Substance: METHYLPREDNISOLONE
     Dosage: 2 MG, 2X/DAY
     Dates: start: 20210405
  9. MEDROL [Suspect]
     Active Substance: METHYLPREDNISOLONE
     Dosage: 2 MG BD, ALTERNATE DAYS 2 MG ONCE A DAY
     Dates: start: 20210412
  10. MEDROL [Suspect]
     Active Substance: METHYLPREDNISOLONE
     Dosage: 2 MG, 1X/DAY
     Dates: start: 20210422
  11. MEDROL [Suspect]
     Active Substance: METHYLPREDNISOLONE
     Dosage: 2 MG, ALTERNATE DAY
     Dates: start: 20210522
  12. MEDROL [Suspect]
     Active Substance: METHYLPREDNISOLONE
     Dosage: 2 MG, 1X/DAY
     Dates: start: 20210611
  13. MEDROL [Suspect]
     Active Substance: METHYLPREDNISOLONE
     Dosage: 2 MG, ALTERNATE DAY
     Dates: start: 20210628
  14. MEDROL [Suspect]
     Active Substance: METHYLPREDNISOLONE
     Dosage: 2 MG, ALTERNATE DAY
     Dates: start: 20210729
  15. MEDROL [Suspect]
     Active Substance: METHYLPREDNISOLONE
     Dosage: 2 MG, ALTERNATE DAY
     Dates: start: 20210827
  16. CEFUROXIME SODIUM [Suspect]
     Active Substance: CEFUROXIME SODIUM
     Dosage: FOR 5 DAYS
     Dates: start: 20210228
  17. CAMPHOR\GLYCERIN\MENTHOL\ZINC OXIDE [Suspect]
     Active Substance: CAMPHOR\GLYCERIN\MENTHOL\ZINC OXIDE
     Dosage: UNK
     Dates: start: 20210228
  18. CAMPHOR\GLYCERIN\MENTHOL\ZINC OXIDE [Suspect]
     Active Substance: CAMPHOR\GLYCERIN\MENTHOL\ZINC OXIDE
     Dosage: UNK
     Dates: start: 20210308
  19. CAMPHOR\GLYCERIN\MENTHOL\ZINC OXIDE [Suspect]
     Active Substance: CAMPHOR\GLYCERIN\MENTHOL\ZINC OXIDE
     Dosage: UNK
     Dates: start: 20210315
  20. CAMPHOR\GLYCERIN\MENTHOL\ZINC OXIDE [Suspect]
     Active Substance: CAMPHOR\GLYCERIN\MENTHOL\ZINC OXIDE
     Dosage: UNK
     Dates: start: 20210322
  21. CAMPHOR\GLYCERIN\MENTHOL\ZINC OXIDE [Suspect]
     Active Substance: CAMPHOR\GLYCERIN\MENTHOL\ZINC OXIDE
     Dosage: UNK
     Dates: start: 20210327
  22. CAMPHOR\GLYCERIN\MENTHOL\ZINC OXIDE [Suspect]
     Active Substance: CAMPHOR\GLYCERIN\MENTHOL\ZINC OXIDE
     Dosage: UNK
     Dates: start: 20210405
  23. CAMPHOR\GLYCERIN\MENTHOL\ZINC OXIDE [Suspect]
     Active Substance: CAMPHOR\GLYCERIN\MENTHOL\ZINC OXIDE
     Dosage: UNK
     Dates: start: 20210412
  24. CAMPHOR\GLYCERIN\MENTHOL\ZINC OXIDE [Suspect]
     Active Substance: CAMPHOR\GLYCERIN\MENTHOL\ZINC OXIDE
     Dosage: UNK
     Dates: start: 20210422
  25. CAMPHOR\GLYCERIN\MENTHOL\ZINC OXIDE [Suspect]
     Active Substance: CAMPHOR\GLYCERIN\MENTHOL\ZINC OXIDE
     Dosage: UNK
     Dates: start: 20210522
  26. CAMPHOR\GLYCERIN\MENTHOL\ZINC OXIDE [Suspect]
     Active Substance: CAMPHOR\GLYCERIN\MENTHOL\ZINC OXIDE
     Dosage: UNK
     Dates: start: 20210611
  27. CAMPHOR\GLYCERIN\MENTHOL\ZINC OXIDE [Suspect]
     Active Substance: CAMPHOR\GLYCERIN\MENTHOL\ZINC OXIDE
     Dosage: UNK
     Dates: start: 20210628
  28. CAMPHOR\GLYCERIN\MENTHOL\ZINC OXIDE [Suspect]
     Active Substance: CAMPHOR\GLYCERIN\MENTHOL\ZINC OXIDE
     Dosage: UNK
     Dates: start: 20210827
  29. METHOTREXATE [Suspect]
     Active Substance: METHOTREXATE
     Dosage: ONCE A WEEK
     Dates: start: 20210222
  30. METHOTREXATE [Suspect]
     Active Substance: METHOTREXATE
     Dosage: ONCE A WEEK
     Dates: start: 20210315
  31. METHOTREXATE [Suspect]
     Active Substance: METHOTREXATE
     Dosage: ONCE A WEEK
     Dates: start: 20210322
  32. METHOTREXATE [Suspect]
     Active Substance: METHOTREXATE
     Dosage: ONCE A WEEK
     Dates: start: 20210327
  33. METHOTREXATE [Suspect]
     Active Substance: METHOTREXATE
     Dosage: ONCE A WEEK
     Dates: start: 20210405
  34. METHOTREXATE [Suspect]
     Active Substance: METHOTREXATE
     Dosage: ONCE A WEEK
     Dates: start: 20210412
  35. METHOTREXATE [Suspect]
     Active Substance: METHOTREXATE
     Dosage: ONCE A WEEK
     Dates: start: 20210422
  36. METHOTREXATE [Suspect]
     Active Substance: METHOTREXATE
     Dosage: 25 MG, WEEKLY
     Dates: start: 20210522
  37. METHOTREXATE [Suspect]
     Active Substance: METHOTREXATE
     Dosage: 25 MG, WEEKLY
     Dates: start: 20210611
  38. METHOTREXATE [Suspect]
     Active Substance: METHOTREXATE
     Dosage: 25 MG, WEEKLY
     Dates: start: 20210628
  39. METHOTREXATE [Suspect]
     Active Substance: METHOTREXATE
     Dosage: 25 MG, WEEKLY
     Dates: start: 20210827
  40. METHOTREXATE [Suspect]
     Active Substance: METHOTREXATE
     Dosage: UNK
     Dates: end: 20210928
  41. CLOBAZAM [Suspect]
     Active Substance: CLOBAZAM
     Dosage: UNK, 2X/DAY
     Dates: start: 20210315
  42. CLOBAZAM [Suspect]
     Active Substance: CLOBAZAM
     Dosage: UNK, 2X/DAY
     Dates: start: 20210322
  43. CLOBAZAM [Suspect]
     Active Substance: CLOBAZAM
     Dosage: UNK, 1X/DAY
     Dates: start: 20210327
  44. CLOBAZAM [Suspect]
     Active Substance: CLOBAZAM
     Dosage: UNK, 1X/DAY
     Dates: start: 20210405
  45. CLOBAZAM [Suspect]
     Active Substance: CLOBAZAM
     Dosage: UNK, 1X/DAY
     Dates: start: 20210412
  46. CLOBAZAM [Suspect]
     Active Substance: CLOBAZAM
     Dosage: UNK, 2X/DAY
     Dates: start: 20210422
  47. HERBALS\MINERALS\VITAMINS [Suspect]
     Active Substance: HERBALS\MINERALS\VITAMINS
     Dosage: UNK, 1X/DAY
     Dates: start: 20210412
  48. HERBALS\MINERALS\VITAMINS [Suspect]
     Active Substance: HERBALS\MINERALS\VITAMINS
     Dosage: UNK, 1X/DAY
     Dates: start: 20210422
  49. HERBALS\MINERALS\VITAMINS [Suspect]
     Active Substance: HERBALS\MINERALS\VITAMINS
     Dosage: UNK, DAILY
     Dates: start: 20210522
  50. ALLEGRA [Suspect]
     Active Substance: FEXOFENADINE HYDROCHLORIDE
     Dosage: 120, 1X/DAY
     Dates: start: 20210405
  51. LEVOCETIRIZINE DIHYDROCHLORIDE\MONTELUKAST SODIUM [Suspect]
     Active Substance: LEVOCETIRIZINE DIHYDROCHLORIDE\MONTELUKAST SODIUM
     Dosage: UNK, 2X/DAY
     Dates: start: 20210422
  52. LEVOCETIRIZINE DIHYDROCHLORIDE\MONTELUKAST SODIUM [Suspect]
     Active Substance: LEVOCETIRIZINE DIHYDROCHLORIDE\MONTELUKAST SODIUM
     Dosage: UNK, DAILY
     Dates: start: 20210522
  53. LEVOCETIRIZINE DIHYDROCHLORIDE\MONTELUKAST SODIUM [Suspect]
     Active Substance: LEVOCETIRIZINE DIHYDROCHLORIDE\MONTELUKAST SODIUM
     Dosage: UNK, 2X/DAY
     Dates: start: 20210611
  54. LEVOCETIRIZINE DIHYDROCHLORIDE\MONTELUKAST SODIUM [Suspect]
     Active Substance: LEVOCETIRIZINE DIHYDROCHLORIDE\MONTELUKAST SODIUM
     Dosage: UNK, 2X/DAY
     Dates: start: 20210628
  55. LEVOCETIRIZINE DIHYDROCHLORIDE\MONTELUKAST SODIUM [Suspect]
     Active Substance: LEVOCETIRIZINE DIHYDROCHLORIDE\MONTELUKAST SODIUM
     Dosage: UNK, 2X/DAY
     Dates: start: 20210827
  56. AUGMENTIN [Suspect]
     Active Substance: AMOXICILLIN\CLAVULANATE POTASSIUM
     Dosage: UNK, FOR 5 DAYS
     Dates: start: 20210611
  57. CYCLOSPORINE [Concomitant]
     Active Substance: CYCLOSPORINE
     Dosage: UNK
     Dates: start: 20211212, end: 20220211
  58. DUPILUMAB [Concomitant]
     Active Substance: DUPILUMAB
     Dosage: UNK
  59. MYCOPHENOLATE MOFETIL [Concomitant]
     Active Substance: MYCOPHENOLATE MOFETIL
     Dosage: UNK
  60. FOLIC ACID [Concomitant]
     Active Substance: FOLIC ACID
     Dosage: OD
     Dates: start: 20210228
  61. FOLIC ACID [Concomitant]
     Active Substance: FOLIC ACID
     Dosage: UNK
     Dates: start: 20210315
  62. FOLIC ACID [Concomitant]
     Active Substance: FOLIC ACID
     Dosage: UNK, DAILY
     Dates: start: 20210522

REACTIONS (13)
  - Erythema [Unknown]
  - CSF polymorphonuclear cell count increased [Unknown]
  - Lichenification [Unknown]
  - Exfoliative rash [Unknown]
  - Dry skin [Unknown]
  - Skin exfoliation [Unknown]
  - Nail disorder [Unknown]
  - Dermatitis atopic [Unknown]
  - Nasal crease [Unknown]
  - White blood cell count increased [Unknown]
  - Eosinophil count increased [Unknown]
  - Red blood cell sedimentation rate increased [Unknown]
  - Lymphocyte count decreased [Unknown]

NARRATIVE: CASE EVENT DATE: 20210307
